FAERS Safety Report 6119453-6 (Version None)
Quarter: 2009Q1

REPORT INFORMATION
  Report Type: 
  Country: None (occurrence: None)
  Receive Date: 20090316
  Receipt Date: 20090306
  Transmission Date: 20090719
  Serious: Yes (Hospitalization)
  Sender: FDA-Public Use
  Company Number: A0773117A

PATIENT
  Age: 63 Year
  Sex: Male
  Weight: 81.8 kg

DRUGS (5)
  1. AVANDIA [Suspect]
     Dosage: 4MG UNKNOWN
     Route: 048
  2. LOPRESSOR [Concomitant]
  3. NORVASC [Concomitant]
  4. PREVACID [Concomitant]
  5. TRICOR [Concomitant]

REACTIONS (6)
  - ANXIETY [None]
  - BALANCE DISORDER [None]
  - CEREBROVASCULAR ACCIDENT [None]
  - DEPRESSION [None]
  - HEMIPLEGIA [None]
  - SPEECH DISORDER [None]
